FAERS Safety Report 9202151 (Version 1)
Quarter: 2013Q1

REPORT INFORMATION
  Report Type: Spontaneous
  Country: PL (occurrence: None)
  Receive Date: 20130328
  Receipt Date: 20130328
  Transmission Date: 20140127
  Serious: Yes (Hospitalization)
  Sender: FDA-Public Use
  Company Number: 2013-05252

PATIENT
  Age: 30 Year
  Sex: Female

DRUGS (2)
  1. ANAGRELIDE HYDROCHLORIDE [Suspect]
  2. PHENTERMINE [Suspect]
     Indication: WEIGHT CONTROL

REACTIONS (1)
  - Stress cardiomyopathy [None]
